FAERS Safety Report 21724988 (Version 3)
Quarter: 2023Q1

REPORT INFORMATION
  Report Type: Spontaneous
  Country: US (occurrence: US)
  Receive Date: 20221214
  Receipt Date: 20230105
  Transmission Date: 20230417
  Serious: No
  Sender: FDA-Public Use
  Company Number: US-BRISTOL-MYERS SQUIBB COMPANY-2022-152529

PATIENT
  Age: 58 Year
  Sex: Female

DRUGS (1)
  1. REVLIMID [Suspect]
     Active Substance: LENALIDOMIDE
     Indication: Plasma cell myeloma
     Dosage: FREQUENCY: TAKE 1 CAPSULE BY MOUTH EVERY DAY FOR 14 DAYS OFF FOR 7 DAYS
     Route: 048
     Dates: start: 20220112

REACTIONS (6)
  - Back pain [Unknown]
  - Constipation [Unknown]
  - Nausea [Unknown]
  - Tremor [Unknown]
  - Restlessness [Unknown]
  - Off label use [Unknown]
